FAERS Safety Report 21889685 (Version 9)
Quarter: 2025Q2

REPORT INFORMATION
  Report Type: Spontaneous
  Country: JP (occurrence: JP)
  Receive Date: 20230120
  Receipt Date: 20250514
  Transmission Date: 20250716
  Serious: Yes (Death, Hospitalization, Other)
  Sender: UNITED THERAPEUTICS
  Company Number: JP-UNITED THERAPEUTICS-UNT-2021-026449

PATIENT
  Age: 6 Year
  Sex: Female
  Weight: 21.6 kg

DRUGS (33)
  1. UNITUXIN [Suspect]
     Active Substance: DINUTUXIMAB
     Indication: Neuroblastoma
     Route: 041
     Dates: start: 20211213, end: 20211216
  2. UNITUXIN [Suspect]
     Active Substance: DINUTUXIMAB
     Route: 041
     Dates: start: 20220118, end: 20220121
  3. UNITUXIN [Suspect]
     Active Substance: DINUTUXIMAB
     Route: 041
     Dates: start: 20220214, end: 20220217
  4. UNITUXIN [Suspect]
     Active Substance: DINUTUXIMAB
     Route: 041
     Dates: start: 20220321, end: 20220324
  5. UNITUXIN [Suspect]
     Active Substance: DINUTUXIMAB
     Route: 041
     Dates: start: 20220418, end: 20220421
  6. UNITUXIN [Suspect]
     Active Substance: DINUTUXIMAB
     Route: 041
     Dates: start: 20220603, end: 20220606
  7. FENTANYL [Suspect]
     Active Substance: FENTANYL
     Indication: Prophylaxis
     Dates: start: 20211213, end: 20211216
  8. FENTANYL [Suspect]
     Active Substance: FENTANYL
     Dates: start: 20220118, end: 20220121
  9. FENTANYL [Suspect]
     Active Substance: FENTANYL
     Dates: start: 20220214, end: 20220217
  10. FENTANYL [Suspect]
     Active Substance: FENTANYL
     Dates: start: 20220321, end: 20220324
  11. FENTANYL [Suspect]
     Active Substance: FENTANYL
     Dates: start: 20220421, end: 20220424
  12. FENTANYL [Suspect]
     Active Substance: FENTANYL
     Dates: start: 20220603, end: 20220606
  13. TECELEUKIN [Suspect]
     Active Substance: TECELEUKIN
     Indication: Neuroblastoma
     Dates: start: 20220314, end: 20220317
  14. TECELEUKIN [Suspect]
     Active Substance: TECELEUKIN
     Dates: start: 20220321, end: 20220324
  15. TECELEUKIN [Suspect]
     Active Substance: TECELEUKIN
     Dates: start: 20220111, end: 20220114
  16. TECELEUKIN [Suspect]
     Active Substance: TECELEUKIN
     Dates: start: 20220118, end: 20220121
  17. TECELEUKIN [Suspect]
     Active Substance: TECELEUKIN
     Dates: start: 20220527, end: 20220530
  18. TECELEUKIN [Suspect]
     Active Substance: TECELEUKIN
     Dates: start: 20220603, end: 20220606
  19. FILGRASTIM [Concomitant]
     Active Substance: FILGRASTIM
     Indication: Neuroblastoma
     Dosage: 5 ?G/KG, QD (CYCLE 1)
     Dates: start: 20211210, end: 20211223
  20. FILGRASTIM [Concomitant]
     Active Substance: FILGRASTIM
     Dosage: 5 ?G/KG, QD (CYCLE 2)
     Dates: start: 20220211, end: 20220224
  21. FILGRASTIM [Concomitant]
     Active Substance: FILGRASTIM
     Dosage: 5 ?G/KG, QD (CYCLE 3)
     Dates: start: 20220415, end: 20220428
  22. HYDROXYZINE [Concomitant]
     Active Substance: HYDROXYZINE HYDROCHLORIDE
     Indication: Prophylaxis
     Dates: start: 20211213, end: 20211216
  23. HYDROXYZINE [Concomitant]
     Active Substance: HYDROXYZINE HYDROCHLORIDE
     Dates: start: 20220118, end: 20220121
  24. HYDROXYZINE [Concomitant]
     Active Substance: HYDROXYZINE HYDROCHLORIDE
     Dates: start: 20220214, end: 20220217
  25. HYDROXYZINE [Concomitant]
     Active Substance: HYDROXYZINE HYDROCHLORIDE
     Dates: start: 20220321, end: 20220324
  26. HYDROXYZINE [Concomitant]
     Active Substance: HYDROXYZINE HYDROCHLORIDE
     Dates: start: 20220421, end: 20220424
  27. HYDROXYZINE [Concomitant]
     Active Substance: HYDROXYZINE HYDROCHLORIDE
     Dates: start: 20220603, end: 20220606
  28. ACETAMINOPHEN [Concomitant]
     Active Substance: ACETAMINOPHEN
     Indication: Prophylaxis
     Dates: start: 20211213, end: 20211216
  29. ACETAMINOPHEN [Concomitant]
     Active Substance: ACETAMINOPHEN
     Dates: start: 20220118, end: 20220121
  30. ACETAMINOPHEN [Concomitant]
     Active Substance: ACETAMINOPHEN
     Dates: start: 20220214, end: 20220224
  31. ACETAMINOPHEN [Concomitant]
     Active Substance: ACETAMINOPHEN
     Dates: start: 20220321, end: 20220324
  32. ACETAMINOPHEN [Concomitant]
     Active Substance: ACETAMINOPHEN
     Dates: start: 20220421, end: 20220424
  33. ACETAMINOPHEN [Concomitant]
     Active Substance: ACETAMINOPHEN
     Dates: start: 20220603, end: 20220606

REACTIONS (15)
  - Neuroblastoma recurrent [Fatal]
  - Platelet count decreased [Recovered/Resolved]
  - Platelet count decreased [Recovered/Resolved]
  - Exophthalmos [Recovering/Resolving]
  - Pyrexia [Recovered/Resolved]
  - Pyrexia [Recovering/Resolving]
  - Constipation [Recovered/Resolved]
  - Pyrexia [Recovering/Resolving]
  - Vision blurred [Recovered/Resolved]
  - Headache [Recovered/Resolved]
  - Oedema [Recovering/Resolving]
  - Oxygen saturation decreased [Recovering/Resolving]
  - Headache [Recovering/Resolving]
  - Abdominal pain [Recovered/Resolved]
  - Oedema [Recovering/Resolving]

NARRATIVE: CASE EVENT DATE: 20211213
